FAERS Safety Report 8895658 (Version 1)
Quarter: 2012Q4

REPORT INFORMATION
  Report Type: 
  Country: US (occurrence: US)
  Receive Date: 20121107
  Receipt Date: 20121107
  Transmission Date: 20130627
  Serious: No
  Sender: FDA-Public Use
  Company Number: US-B.I. PHARMACEUTICALS,INC./RIDGEFIELD-2012-BP-27252BP

PATIENT
  Age: 80 Year
  Sex: Male
  Weight: 107 kg

DRUGS (18)
  1. FLOMAX CAPSULES [Suspect]
     Indication: URINE FLOW DECREASED
     Dosage: 0.4 mg
     Route: 048
  2. SPIRIVA [Suspect]
     Indication: CHRONIC OBSTRUCTIVE PULMONARY DISEASE
     Dosage: 18 mcg
     Route: 055
  3. DULCOLAX TABLETS [Suspect]
     Indication: CONSTIPATION
     Dosage: 15 mg
     Route: 048
     Dates: start: 20121102, end: 20121104
  4. ACYCLOVIR [Concomitant]
     Indication: HERPES SIMPLEX
     Route: 048
  5. BABY ASPIRIN [Concomitant]
     Indication: CARDIAC DISORDER
     Route: 048
  6. OMEPRAZOLE [Concomitant]
     Indication: GASTROOESOPHAGEAL REFLUX DISEASE
     Dosage: 60 mg
     Route: 048
  7. BYSTOLIC [Concomitant]
     Indication: HEART RATE INCREASED
     Dosage: 10 mg
     Route: 048
  8. DEXILANT [Concomitant]
     Indication: GASTROOESOPHAGEAL REFLUX DISEASE
     Dosage: 60 mg
     Route: 048
  9. FURESOMIDE [Concomitant]
     Indication: DIURETIC THERAPY
     Dosage: 80 mg
     Route: 048
  10. LANTUS  INSULIN [Concomitant]
     Indication: DIABETES MELLITUS
     Dosage: 36 U
     Route: 058
  11. LIPITOR [Concomitant]
     Indication: BLOOD CHOLESTEROL INCREASED
     Dosage: 40 mg
     Route: 048
  12. LISINOPRIL [Concomitant]
     Indication: CARDIAC DISORDER
     Dosage: 10 mg
     Route: 048
  13. METFORMIN [Concomitant]
     Indication: DIABETES MELLITUS
     Dosage: 2000 mg
     Route: 048
  14. NOVALOG INSULIN [Concomitant]
     Indication: DIABETES MELLITUS
     Dosage: 48 U
     Route: 058
  15. RANITIDINE [Concomitant]
     Indication: GASTROOESOPHAGEAL REFLUX DISEASE
     Dosage: 300 mg
     Route: 048
  16. SYNTHROID [Concomitant]
     Dosage: 100 mcg
     Route: 048
  17. XOPENEX VIA NEBULIZER [Concomitant]
     Indication: ASTHMA
     Route: 055
  18. XOPENEX VIA NEBULIZER [Concomitant]
     Indication: CHRONIC OBSTRUCTIVE PULMONARY DISEASE

REACTIONS (1)
  - Diarrhoea [Recovered/Resolved]
